FAERS Safety Report 14632723 (Version 2)
Quarter: 2018Q2

REPORT INFORMATION
  Report Type: Spontaneous
  Country: JP (occurrence: JP)
  Receive Date: 20180313
  Receipt Date: 20180601
  Transmission Date: 20180711
  Serious: Yes (Other)
  Sender: FDA-Public Use
  Company Number: JP-BEH-2018087981

PATIENT
  Age: 7 Year
  Sex: Male
  Weight: 21.3 kg

DRUGS (9)
  1. RITUXAN [Concomitant]
     Active Substance: RITUXIMAB
     Indication: NEPHROTIC SYNDROME
     Dosage: 300 MG, UNK
     Route: 042
     Dates: start: 20160203
  2. ATARAX-P                           /00058402/ [Concomitant]
     Active Substance: HYDROXYZINE HYDROCHLORIDE
     Dosage: 20 MG, 5 MONTHS
     Route: 042
     Dates: start: 20170203
  3. HIZENTRA [Suspect]
     Active Substance: HUMAN IMMUNOGLOBULIN G
     Dosage: 20 ML, EVERY 4 MONTHS
     Route: 058
     Dates: start: 20170511
  4. DAIPHEN [Concomitant]
     Active Substance: SULFAMETHOXAZOLE\TRIMETHOPRIM
     Indication: PROPHYLAXIS
     Dosage: UNK
     Route: 048
     Dates: start: 20170204
  5. DAIPHEN [Concomitant]
     Active Substance: SULFAMETHOXAZOLE\TRIMETHOPRIM
     Indication: PNEUMONIA
  6. SOLU-CORTEF [Concomitant]
     Active Substance: HYDROCORTISONE SODIUM SUCCINATE
     Dosage: 100 MG, 5 MONTHS
     Route: 042
     Dates: start: 20170203
  7. HIZENTRA [Suspect]
     Active Substance: HUMAN IMMUNOGLOBULIN G
     Indication: HYPOGAMMAGLOBULINAEMIA
     Dosage: 20 ML, EVERY 4 MONTHS
     Route: 058
     Dates: start: 20170407
  8. HIZENTRA [Suspect]
     Active Substance: HUMAN IMMUNOGLOBULIN G
     Dosage: 20 ML, EVERY 4 MONTHS
     Route: 058
     Dates: start: 20170915
  9. COCARL [Concomitant]
     Active Substance: ACETAMINOPHEN
     Dosage: 150 MG, 5 MONTHS
     Route: 048
     Dates: start: 20170203

REACTIONS (1)
  - Hepatitis B surface antibody positive [Not Recovered/Not Resolved]

NARRATIVE: CASE EVENT DATE: 20170904
